FAERS Safety Report 9129239 (Version 2)
Quarter: 2013Q3

REPORT INFORMATION
  Report Type: Spontaneous
  Country: US (occurrence: US)
  Receive Date: 20130228
  Receipt Date: 20130828
  Transmission Date: 20140515
  Serious: No
  Sender: FDA-Public Use
  Company Number: US-ABBOTT-13P-163-1039276-00

PATIENT
  Age: 68 Year
  Sex: Male

DRUGS (8)
  1. ANDROGEL [Suspect]
     Indication: BLOOD TESTOSTERONE DECREASED
     Dosage: 2 PUMPS DAILY
     Dates: start: 201301
  2. ANDROGEL [Suspect]
     Indication: HYPOGONADISM
     Dosage: 3 PUMPS DAILY
     Dates: start: 201211, end: 201301
  3. ANDROGEL [Suspect]
     Dosage: 2 PUMPS DAILY
     Dates: start: 201209, end: 201211
  4. BENECOL [Concomitant]
     Indication: PRODUCT USED FOR UNKNOWN INDICATION
  5. TRIAMTERENE AND HYDROCHLOROTHIAZIDE [Concomitant]
     Indication: PRODUCT USED FOR UNKNOWN INDICATION
  6. HYZAAR [Concomitant]
     Indication: PRODUCT USED FOR UNKNOWN INDICATION
  7. BYSTOLIC [Concomitant]
     Indication: PRODUCT USED FOR UNKNOWN INDICATION
  8. POTASSIUM [Concomitant]
     Indication: PRODUCT USED FOR UNKNOWN INDICATION

REACTIONS (2)
  - Myalgia [Not Recovered/Not Resolved]
  - Inflammation [Not Recovered/Not Resolved]
